FAERS Safety Report 9349855 (Version 1)
Quarter: 2013Q2

REPORT INFORMATION
  Report Type: Spontaneous
  Country: US (occurrence: None)
  Receive Date: 20130611
  Receipt Date: 20130611
  Transmission Date: 20140414
  Serious: Yes (Hospitalization)
  Sender: FDA-Public Use
  Company Number: US-1198623

PATIENT
  Age: 88 Year
  Sex: Female
  Weight: 55.79 kg

DRUGS (4)
  1. AZOPT [Suspect]
     Indication: GLAUCOMA
     Route: 047
  2. XALATAN [Concomitant]
  3. DILANTIN [Concomitant]
  4. LOVASTATIN [Concomitant]

REACTIONS (1)
  - Cardiac pacemaker insertion [None]
